FAERS Safety Report 7128789-1 (Version None)
Quarter: 2010Q4

REPORT INFORMATION
  Report Type: 
  Country: None (occurrence: None)
  Receive Date: 20101130
  Receipt Date: 20101129
  Transmission Date: 20110411
  Serious: Yes (Other)
  Sender: FDA-Public Use
  Company Number: A0896624A

PATIENT
  Age: 39 Year
  Sex: Female

DRUGS (1)
  1. ABREVA [Suspect]
     Indication: ORAL HERPES
     Route: 061
     Dates: start: 20101126, end: 20101127

REACTIONS (5)
  - HYPOAESTHESIA ORAL [None]
  - LIP SWELLING [None]
  - ORAL HERPES [None]
  - SKIN EXFOLIATION [None]
  - VIITH NERVE PARALYSIS [None]
